FAERS Safety Report 4283094-6 (Version None)
Quarter: 2004Q1

REPORT INFORMATION
  Report Type: 
  Country: None (occurrence: None)
  Receive Date: 20040129
  Receipt Date: 20040119
  Transmission Date: 20041129
  Serious: Yes (Other)
  Sender: FDA-Public Use
  Company Number: 2004-DE-00297GD

PATIENT
  Age: 38 Year
  Sex: Female

DRUGS (1)
  1. METHOTREXATE [Suspect]
     Indication: CROHN'S DISEASE
     Dosage: 25 MG ONCE WEEKLY (NR), IM
     Route: 030

REACTIONS (3)
  - DRUG EFFECT DECREASED [None]
  - HEPATIC FIBROSIS [None]
  - HEPATIC STEATOSIS [None]
